FAERS Safety Report 21969317 (Version 1)
Quarter: 2023Q1

REPORT INFORMATION
  Report Type: Spontaneous
  Country: US (occurrence: None)
  Receive Date: 20230207
  Receipt Date: 20230207
  Transmission Date: 20230417
  Serious: Yes (Disabling)
  Sender: FDA-Public Use
  Company Number: None

PATIENT
  Age: 38 Year
  Sex: Female
  Weight: 126 kg

DRUGS (1)
  1. TAMSULOSIN [Suspect]
     Active Substance: TAMSULOSIN
     Indication: Nephrolithiasis
     Dosage: 30 CAPSULES DAILY ORAL?
     Route: 048
     Dates: start: 20230106, end: 20230207

REACTIONS (6)
  - Palpitations [None]
  - Arthralgia [None]
  - Arthritis [None]
  - Gait disturbance [None]
  - Therapy interrupted [None]
  - Therapeutic response unexpected [None]

NARRATIVE: CASE EVENT DATE: 20230106
